FAERS Safety Report 8048430-3 (Version None)
Quarter: 2012Q1

REPORT INFORMATION
  Report Type: 
  Country: None (occurrence: None)
  Receive Date: 20120110
  Receipt Date: 20111228
  Transmission Date: 20120608
  Serious: Yes (Other)
  Sender: FDA-Public Use
  Company Number: TPA2011A08815

PATIENT
  Sex: Male

DRUGS (2)
  1. ACTOS [Suspect]
     Indication: TYPE 2 DIABETES MELLITUS
  2. ACTOPLUS MET [Suspect]
     Indication: TYPE 2 DIABETES MELLITUS
     Dosage: 100 MG/200 MG

REACTIONS (4)
  - MYOCARDIAL INFARCTION [None]
  - INTERVERTEBRAL DISC DEGENERATION [None]
  - ISCHAEMIC STROKE [None]
  - IMPAIRED HEALING [None]
